FAERS Safety Report 12015774 (Version 2)
Quarter: 2016Q3

REPORT INFORMATION
  Report Type: Report from Study
  Country: CN (occurrence: CN)
  Receive Date: 20160205
  Receipt Date: 20160914
  Transmission Date: 20161109
  Serious: Yes (Death)
  Sender: FDA-Public Use
  Company Number: CN-ASTRAZENECA-2015SF31455

PATIENT
  Age: 28236 Day
  Sex: Male
  Weight: 67 kg

DRUGS (8)
  1. COMPUND AMINOPHYLINE [Concomitant]
     Indication: ASTHMA PROPHYLAXIS
     Route: 048
     Dates: start: 201501, end: 20151113
  2. LIU WEI DI FANG WAN HERB [Concomitant]
     Indication: PROPHYLAXIS
     Route: 048
     Dates: start: 201502, end: 20151113
  3. SUXIAO JIUXIN WAN HERB [Concomitant]
     Indication: CARDIOVASCULAR EVENT PROPHYLAXIS
     Route: 048
     Dates: start: 20131231, end: 20151113
  4. TICAGRELOR [Suspect]
     Active Substance: TICAGRELOR
     Indication: PERIPHERAL ARTERIAL OCCLUSIVE DISEASE
     Route: 048
     Dates: start: 20140108, end: 20151113
  5. ORYZANOL [Concomitant]
     Active Substance: GAMMA ORYZANOL
     Indication: SLEEP DISORDER THERAPY
     Route: 048
     Dates: start: 201502, end: 20151113
  6. OYSTER SHELL CALCIUM [Concomitant]
     Active Substance: CALCIUM
     Indication: MINERAL SUPPLEMENTATION
     Route: 048
     Dates: start: 20150611, end: 20151113
  7. DAN SHEN PIAN HERB [Concomitant]
     Indication: CARDIOVASCULAR EVENT PROPHYLAXIS
     Route: 048
     Dates: start: 201502, end: 20151113
  8. ALLOPURINOL. [Concomitant]
     Active Substance: ALLOPURINOL
     Indication: BLOOD URIC ACID DECREASED
     Route: 048
     Dates: start: 201502, end: 20151113

REACTIONS (1)
  - Chronic obstructive pulmonary disease [Fatal]

NARRATIVE: CASE EVENT DATE: 20151113
